FAERS Safety Report 16086446 (Version 2)
Quarter: 2019Q3

REPORT INFORMATION
  Report Type: Not Available
  Country: US (occurrence: US)
  Receive Date: 20190318
  Receipt Date: 20190930
  Transmission Date: 20191004
  Serious: No
  Sender: FDA-Public Use
  Company Number: US-NEUROCRINE BIOSCIENCES INC.-2019NBI00593

PATIENT
  Age: 80 Year
  Sex: Female

DRUGS (4)
  1. INGREZZA [Suspect]
     Active Substance: VALBENAZINE
     Indication: TARDIVE DYSKINESIA
     Route: 048
     Dates: start: 20190214, end: 20190221
  2. INGREZZA [Suspect]
     Active Substance: VALBENAZINE
     Route: 048
     Dates: start: 20190222
  3. SERAX [Concomitant]
     Active Substance: OXAZEPAM
  4. PROTRIPTYLINE [Concomitant]
     Active Substance: PROTRIPTYLINE

REACTIONS (5)
  - Drug ineffective [None]
  - Feeling jittery [Unknown]
  - Rash [Unknown]
  - Restlessness [Unknown]
  - Constipation [Unknown]

NARRATIVE: CASE EVENT DATE: 2019
